FAERS Safety Report 12882117 (Version 1)
Quarter: 2016Q4

REPORT INFORMATION
  Report Type: Spontaneous
  Country: CN (occurrence: CN)
  Receive Date: 20161025
  Receipt Date: 20161025
  Transmission Date: 20170207
  Serious: Yes (Other)
  Sender: FDA-Public Use
  Company Number: CN-ASTELLAS-2016US041565

PATIENT
  Age: 53 Year
  Sex: Female

DRUGS (2)
  1. TARCEVA [Suspect]
     Active Substance: ERLOTINIB HYDROCHLORIDE
     Indication: LUNG CANCER METASTATIC
     Route: 048
     Dates: start: 201606, end: 201607
  2. TARCEVA [Suspect]
     Active Substance: ERLOTINIB HYDROCHLORIDE
     Route: 048
     Dates: start: 20160808, end: 20160930

REACTIONS (9)
  - Aphthous ulcer [Recovering/Resolving]
  - Rash [Recovering/Resolving]
  - Vomiting [Recovering/Resolving]
  - Vision blurred [Recovering/Resolving]
  - Headache [Unknown]
  - Drug ineffective [Unknown]
  - Depressed level of consciousness [Not Recovered/Not Resolved]
  - Central nervous system lesion [Unknown]
  - Psychotic disorder [Recovering/Resolving]

NARRATIVE: CASE EVENT DATE: 201607
